FAERS Safety Report 17517798 (Version 2)
Quarter: 2020Q1

REPORT INFORMATION
  Report Type: Spontaneous
  Country: SE (occurrence: SE)
  Receive Date: 20200309
  Receipt Date: 20200317
  Transmission Date: 20200409
  Serious: Yes (Other)
  Sender: FDA-Public Use
  Company Number: SE-COVIS PHARMA B.V.-2020COV00100

PATIENT
  Sex: Male

DRUGS (6)
  1. LERCANIDIPINE [Suspect]
     Active Substance: LERCANIDIPINE
     Indication: PULMONARY FIBROSIS
     Dosage: 2 ^DF^ DAILY
     Route: 065
  2. OMEPRAZOLE MAGNESIUM. [Suspect]
     Active Substance: OMEPRAZOLE MAGNESIUM
     Indication: PULMONARY FIBROSIS
     Dosage: 2 ^DF^ DAILY
     Route: 048
  3. INDACATEROL [Suspect]
     Active Substance: INDACATEROL
     Indication: PULMONARY FIBROSIS
     Dosage: 2 ^DF^ DAILY
     Route: 065
  4. OLMESARTAN [Suspect]
     Active Substance: OLMESARTAN
     Indication: PULMONARY FIBROSIS
     Dosage: 2 ^DF^ DAILY
     Route: 065
  5. NINTEDANIB [Suspect]
     Active Substance: NINTEDANIB
     Indication: PULMONARY FIBROSIS
     Dosage: 2 ^DF^ DAILY
     Route: 065
  6. SALBUTAMOL [Suspect]
     Active Substance: ALBUTEROL
     Indication: PULMONARY FIBROSIS
     Dosage: 2 ^DF^ DAILY
     Route: 065

REACTIONS (3)
  - Mesenteric vein thrombosis [Recovered/Resolved]
  - Intestinal ischaemia [Recovered/Resolved]
  - Toxicity to various agents [Unknown]
